FAERS Safety Report 16868868 (Version 1)
Quarter: 2019Q3

REPORT INFORMATION
  Report Type: Spontaneous
  Country: FR (occurrence: FR)
  Receive Date: 20190930
  Receipt Date: 20190930
  Transmission Date: 20191005
  Serious: Yes (Death, Hospitalization)
  Sender: FDA-Public Use
  Company Number: FR-PFIZER INC-2019384988

PATIENT
  Age: 69 Year
  Sex: Male

DRUGS (21)
  1. VANCOMYCIN [Suspect]
     Active Substance: VANCOMYCIN
     Indication: LEGIONELLA INFECTION
  2. VANCOMYCIN [Suspect]
     Active Substance: VANCOMYCIN
     Indication: MORGANELLA INFECTION
     Dosage: 30 MG/KG, DAILY (CONTINUOUS PERFUSION)
  3. CEFEPIME [Suspect]
     Active Substance: CEFEPIME HYDROCHLORIDE
     Indication: STAPHYLOCOCCAL INFECTION
  4. SPIRAMYCIN [Suspect]
     Active Substance: SPIRAMYCIN
     Indication: PNEUMONIA
     Dosage: 3 MILLION IU, 3X/DAY
     Route: 042
  5. SPIRAMYCIN [Suspect]
     Active Substance: SPIRAMYCIN
     Indication: DEVICE RELATED INFECTION
  6. ABATACEPT [Concomitant]
     Active Substance: ABATACEPT
     Indication: RHEUMATOID ARTHRITIS
     Dosage: UNK
     Dates: start: 2018
  7. LEVOFLOXACIN. [Suspect]
     Active Substance: LEVOFLOXACIN
     Indication: PNEUMONIA
     Dosage: 500 MG, 2X/DAY
     Route: 042
  8. LEVOFLOXACIN. [Suspect]
     Active Substance: LEVOFLOXACIN
     Indication: STAPHYLOCOCCAL INFECTION
  9. LEVOFLOXACIN. [Suspect]
     Active Substance: LEVOFLOXACIN
     Indication: LEGIONELLA INFECTION
  10. VANCOMYCIN [Suspect]
     Active Substance: VANCOMYCIN
     Indication: DEVICE RELATED INFECTION
  11. CEFEPIME [Suspect]
     Active Substance: CEFEPIME HYDROCHLORIDE
     Indication: MORGANELLA INFECTION
  12. SPIRAMYCIN [Suspect]
     Active Substance: SPIRAMYCIN
     Indication: LEGIONELLA INFECTION
  13. VANCOMYCIN [Suspect]
     Active Substance: VANCOMYCIN
     Indication: PNEUMONIA
     Dosage: UNK (LOADING DOSE)
  14. LEVOFLOXACIN. [Suspect]
     Active Substance: LEVOFLOXACIN
     Indication: MORGANELLA INFECTION
  15. CEFEPIME [Suspect]
     Active Substance: CEFEPIME HYDROCHLORIDE
     Indication: LEGIONELLA INFECTION
  16. LEVOFLOXACIN. [Suspect]
     Active Substance: LEVOFLOXACIN
     Indication: DEVICE RELATED INFECTION
  17. CEFEPIME [Suspect]
     Active Substance: CEFEPIME HYDROCHLORIDE
     Indication: DEVICE RELATED INFECTION
  18. SPIRAMYCIN [Suspect]
     Active Substance: SPIRAMYCIN
     Indication: MORGANELLA INFECTION
  19. SPIRAMYCIN [Suspect]
     Active Substance: SPIRAMYCIN
     Indication: STAPHYLOCOCCAL INFECTION
  20. VANCOMYCIN [Suspect]
     Active Substance: VANCOMYCIN
     Indication: STAPHYLOCOCCAL INFECTION
  21. CEFEPIME [Suspect]
     Active Substance: CEFEPIME HYDROCHLORIDE
     Indication: PNEUMONIA
     Dosage: 2 G, 3X/DAY
     Route: 042

REACTIONS (1)
  - Drug ineffective [Fatal]
